FAERS Safety Report 23503845 (Version 3)
Quarter: 2024Q2

REPORT INFORMATION
  Report Type: Spontaneous
  Country: US (occurrence: US)
  Receive Date: 20240209
  Receipt Date: 20240520
  Transmission Date: 20240715
  Serious: No
  Sender: FDA-Public Use
  Company Number: US-ALXN-202402USA000118US

PATIENT
  Sex: Male

DRUGS (1)
  1. ULTOMIRIS [Suspect]
     Active Substance: RAVULIZUMAB-CWVZ
     Indication: Haemolytic uraemic syndrome
     Dosage: 3300 MILLIGRAM, Q56
     Route: 042
     Dates: start: 202308

REACTIONS (3)
  - Off label use [Unknown]
  - Decreased appetite [Unknown]
  - Nausea [Unknown]
